FAERS Safety Report 4966352-9 (Version None)
Quarter: 2006Q2

REPORT INFORMATION
  Report Type: 
  Country: None (occurrence: None)
  Receive Date: 20060407
  Receipt Date: 20060331
  Transmission Date: 20061013
  Serious: Yes (Hospitalization)
  Sender: FDA-Public Use
  Company Number: ES-MERCK-0604ESP00010

PATIENT
  Age: 1 Year
  Sex: Female

DRUGS (1)
  1. SINGULAIR [Suspect]
     Indication: BRONCHIAL HYPERACTIVITY
     Route: 048
     Dates: start: 20050101, end: 20060301

REACTIONS (2)
  - BRONCHOSPASM [None]
  - THROMBOCYTOPENIA [None]
